FAERS Safety Report 12266199 (Version 1)
Quarter: 2016Q2

REPORT INFORMATION
  Report Type: Spontaneous
  Country: US (occurrence: None)
  Receive Date: 20160413
  Receipt Date: 20160413
  Transmission Date: 20160815
  Serious: Yes (Life-Threatening)
  Sender: FDA-Public Use
  Company Number: None

PATIENT
  Age: 27 Year
  Sex: Female
  Weight: 52.16 kg

DRUGS (1)
  1. PAROMOMYCIN, 250 MG [Suspect]
     Active Substance: PAROMOMYCIN SULFATE
     Indication: PARASITE STOOL TEST POSITIVE
     Dosage: 150 CAPSULE(S) THREE TIMES A DAY TAKEN BY MOUTH
     Route: 048
     Dates: start: 20160409, end: 20160410

REACTIONS (6)
  - Dizziness [None]
  - Fatigue [None]
  - Throat irritation [None]
  - Pruritus [None]
  - Rash [None]
  - Thirst [None]

NARRATIVE: CASE EVENT DATE: 20160410
